FAERS Safety Report 11756676 (Version 4)
Quarter: 2016Q1

REPORT INFORMATION
  Report Type: Spontaneous
  Country: SE (occurrence: SE)
  Receive Date: 20151120
  Receipt Date: 20160310
  Transmission Date: 20160525
  Serious: Yes (Hospitalization)
  Sender: FDA-Public Use
  Company Number: SE-ASTRAZENECA-2015SF11559

PATIENT
  Sex: Male

DRUGS (18)
  1. PREDNISOLON [Suspect]
     Active Substance: PREDNISOLONE
     Route: 065
  2. CLOPIDOGREL [Concomitant]
     Active Substance: CLOPIDOGREL BISULFATE
  3. FINASTERIDE. [Concomitant]
     Active Substance: FINASTERIDE
  4. SALURES [Concomitant]
     Active Substance: BENDROFLUMETHIAZIDE
  5. RHINOCORT [Concomitant]
     Active Substance: BUDESONIDE
     Dosage: 32 ???G/DOSE, 1X2
     Route: 045
  6. ALVEDON [Concomitant]
     Active Substance: ACETAMINOPHEN
  7. EKLIRA GENUAIR [Suspect]
     Active Substance: ACLIDINIUM BROMIDE
     Indication: CHRONIC OBSTRUCTIVE PULMONARY DISEASE
     Route: 055
     Dates: start: 20150923
  8. BETNOVAT [Concomitant]
     Active Substance: BETAMETHASONE
     Dosage: TWO TIMES A DAY
     Route: 003
  9. ENALAPRIL [Concomitant]
     Active Substance: ENALAPRIL
  10. SIMVASTATIN. [Concomitant]
     Active Substance: SIMVASTATIN
     Dosage: SIMIDON, 20 MG, DAILY
  11. TROMBYL [Concomitant]
     Active Substance: ASPIRIN
  12. CLOPIDOGREL+ASA [Concomitant]
  13. EKLIRA GENUAIR [Suspect]
     Active Substance: ACLIDINIUM BROMIDE
     Indication: DYSPNOEA
     Route: 055
     Dates: start: 20150923
  14. ATENOLOL. [Concomitant]
     Active Substance: ATENOLOL
  15. OMECAT [Concomitant]
     Dosage: 1X1
  16. PEVARYL [Concomitant]
     Active Substance: ECONAZOLE NITRATE
     Dosage: DAILY
  17. ALFUZOSIN [Concomitant]
     Active Substance: ALFUZOSIN
  18. PRIMPERAN [Concomitant]
     Active Substance: METOCLOPRAMIDE HYDROCHLORIDE

REACTIONS (6)
  - Dyspnoea [Unknown]
  - Product quality issue [Unknown]
  - Eye haemorrhage [Unknown]
  - Oral discomfort [Unknown]
  - Ischaemic stroke [Not Recovered/Not Resolved]
  - Basal ganglia infarction [Unknown]
